FAERS Safety Report 7710200-0 (Version None)
Quarter: 2011Q3

REPORT INFORMATION
  Report Type: 
  Country: None (occurrence: None)
  Receive Date: 20110825
  Receipt Date: 20101207
  Transmission Date: 20111222
  Serious: Yes (Death, Life-Threatening, Hospitalization, Other)
  Sender: FDA-Public Use
  Company Number: DE-UCBSA-000504

PATIENT
  Age: 60 Year
  Sex: Male
  Weight: 80 kg

DRUGS (4)
  1. FOSINOPRIL SODIUM AND HYDROCHLOROTHIAZIDE [Suspect]
     Route: 048
     Dates: start: 20080512, end: 20080518
  2. METOCLOPRAMIDE HYDROCHLORIDE [Suspect]
     Dosage: 3 X 20 DROPS
     Route: 048
     Dates: start: 20080512, end: 20080521
  3. FLUVASTATIN SODIUM [Suspect]
     Route: 048
     Dates: start: 20080515, end: 20080518
  4. AVELOX [Suspect]
     Route: 048
     Dates: start: 20080512, end: 20080516

REACTIONS (2)
  - LONG QT SYNDROME [None]
  - SEPTIC SHOCK [None]
